FAERS Safety Report 5104650-9 (Version None)
Quarter: 2006Q3

REPORT INFORMATION
  Report Type: 
  Country: None (occurrence: None)
  Receive Date: 20060912
  Receipt Date: 20060912
  Transmission Date: 20061208
  Serious: Yes (Other)
  Sender: FDA-Public Use
  Company Number: None

PATIENT
  Age: 73 Year
  Sex: Male
  Weight: 78.9259 kg

DRUGS (7)
  1. LEVAQUIN [Suspect]
     Indication: SINUSITIS
     Dosage: 500MG TAB 1 DAILY X 10 DAYS PO
     Route: 048
     Dates: start: 20051124, end: 20051203
  2. DELESTYRL [Concomitant]
  3. TESTOSTERONE REPLACEMENT THERAPY [Concomitant]
  4. XALATAN [Concomitant]
  5. GLAUCOMA PREVENTION THERAPY [Concomitant]
  6. GLUCOPHAGE [Concomitant]
  7. ASPIRIN [Concomitant]

REACTIONS (4)
  - ILL-DEFINED DISORDER [None]
  - JOINT INSTABILITY [None]
  - MEDICAL DEVICE COMPLICATION [None]
  - TENDONITIS [None]
